FAERS Safety Report 5537435-X (Version None)
Quarter: 2007Q4

REPORT INFORMATION
  Report Type: 
  Country: None (occurrence: None)
  Receive Date: 20071207
  Receipt Date: 20071126
  Transmission Date: 20080405
  Serious: Yes (Other)
  Sender: FDA-Public Use
  Company Number: ZA-GILEAD-2007-0014320

PATIENT
  Age: 41 Year
  Sex: Female
  Weight: 53 kg

DRUGS (7)
  1. EMTRICITABINE [Suspect]
     Indication: RETROVIRAL INFECTION
     Route: 048
     Dates: start: 20061116
  2. DIDANOSINE [Suspect]
     Indication: RETROVIRAL INFECTION
     Route: 048
     Dates: start: 20061116
  3. ATAZANAVIR [Suspect]
     Indication: RETROVIRAL INFECTION
     Route: 048
     Dates: start: 20061116
  4. BACTRIM [Concomitant]
     Route: 065
  5. VITAMIN B [Concomitant]
     Route: 065
  6. FOLIC ACID [Concomitant]
     Route: 065
  7. IRON SULPHATE [Concomitant]
     Route: 065

REACTIONS (1)
  - ABORTION SPONTANEOUS [None]
